FAERS Safety Report 8334246-7 (Version None)
Quarter: 2012Q2

REPORT INFORMATION
  Report Type: 
  Country: None (occurrence: None)
  Receive Date: 20120503
  Receipt Date: 20120423
  Transmission Date: 20120825
  Serious: Yes (Hospitalization)
  Sender: FDA-Public Use
  Company Number: DE-GLAXOSMITHKLINE-D0075360A

PATIENT
  Age: 71 Year
  Sex: Male

DRUGS (9)
  1. AMANTADINE HCL [Concomitant]
     Dosage: 150MG PER DAY
     Route: 048
  2. REQUIP [Suspect]
     Indication: PARKINSON'S DISEASE
     Route: 048
  3. TILIDINE/NALOXONE [Concomitant]
     Route: 065
  4. LISINOPRIL [Concomitant]
     Dosage: 20MG PER DAY
     Route: 048
  5. AMLODIPINE [Concomitant]
     Dosage: 5MG PER DAY
     Route: 048
  6. CARBIDOPA AND LEVODOPA [Concomitant]
     Dosage: 100MG FOUR TIMES PER DAY
     Route: 048
  7. ASPIRIN [Concomitant]
     Dosage: 300MG PER DAY
     Route: 048
  8. LISIHEXAL [Concomitant]
     Route: 048
  9. PANTOPRAZOLE [Concomitant]
     Dosage: 20MG PER DAY
     Route: 048

REACTIONS (7)
  - PARKINSON'S DISEASE [None]
  - PAIN IN EXTREMITY [None]
  - BLADDER DISORDER [None]
  - DRUG INEFFECTIVE [None]
  - SPINAL OSTEOARTHRITIS [None]
  - HYPOKINESIA [None]
  - MULTIPLE SYSTEM ATROPHY [None]
